FAERS Safety Report 5138826-1 (Version None)
Quarter: 2006Q4

REPORT INFORMATION
  Report Type: 
  Country: None (occurrence: None)
  Receive Date: 20061024
  Receipt Date: 20061011
  Transmission Date: 20070319
  Serious: Yes (Hospitalization, Other)
  Sender: FDA-Public Use
  Company Number: 2006US001848

PATIENT
  Age: 39 Year
  Sex: Male
  Weight: 88 kg

DRUGS (1)
  1. PROTOPIC [Suspect]
     Indication: PSORIASIS
     Dosage: UNK, UNK, TOPICAL
     Route: 061

REACTIONS (5)
  - ANAL HAEMORRHAGE [None]
  - ANOGENITAL DYSPLASIA [None]
  - BOWEN'S DISEASE [None]
  - CARCINOMA IN SITU [None]
  - SQUAMOUS CELL CARCINOMA [None]
